FAERS Safety Report 9418730 (Version 1)
Quarter: 2013Q3

REPORT INFORMATION
  Report Type: Spontaneous
  Country: US (occurrence: US)
  Receive Date: 20130725
  Receipt Date: 20130725
  Transmission Date: 20140515
  Serious: No
  Sender: FDA-Public Use
  Company Number: US-PFIZER INC-2013215058

PATIENT
  Sex: Female

DRUGS (3)
  1. CISPLATIN [Suspect]
     Indication: OVARIAN CANCER
     Dosage: UNK
  2. AVASTIN [Suspect]
     Indication: OVARIAN CANCER
     Dosage: UNK
  3. CYTOXAN [Suspect]
     Indication: OVARIAN CANCER
     Dosage: UNK

REACTIONS (2)
  - Disease progression [Unknown]
  - Ovarian cancer [Unknown]
